FAERS Safety Report 22080266 (Version 1)
Quarter: 2023Q1

REPORT INFORMATION
  Report Type: Spontaneous
  Country: GB (occurrence: GB)
  Receive Date: 20230309
  Receipt Date: 20230309
  Transmission Date: 20230418
  Serious: Yes (Other)
  Sender: FDA-Public Use
  Company Number: None

PATIENT
  Age: 60 Year
  Sex: Female
  Weight: 52 kg

DRUGS (12)
  1. CIPROFLOXACIN [Suspect]
     Active Substance: CIPROFLOXACIN
     Indication: Hiatus hernia
     Dosage: 500 MILLIGRAM
     Route: 048
  2. CHOLECALCIFEROL [Concomitant]
     Active Substance: CHOLECALCIFEROL
     Dosage: 1000 INTERNATIONAL UNIT, QD
     Route: 065
     Dates: start: 20230120
  3. COSOPT [Concomitant]
     Active Substance: DORZOLAMIDE HYDROCHLORIDE\TIMOLOL MALEATE
     Dosage: 1 DOSAGE FORM, BID (20MG/ML/ 5MG/ML)(LEFT EYE. SANTEN UK LTD.)
     Route: 065
     Dates: start: 20230201
  4. DIAZEPAM [Concomitant]
     Active Substance: DIAZEPAM
     Dosage: UNK (FOR USE WHEN ON DIALYSIS)
     Route: 065
     Dates: start: 20221212
  5. DOXAZOSIN [Concomitant]
     Active Substance: DOXAZOSIN MESYLATE
     Dosage: 4 MILLIGRAM, QD
     Route: 065
     Dates: start: 20230120
  6. FUSIDIC ACID [Concomitant]
     Active Substance: FUSIDIC ACID
     Dosage: 1 DOSAGE FORM, BID (MODIFIED-RELEASE)
     Route: 065
     Dates: start: 20230105
  7. HYALURONATE SODIUM [Concomitant]
     Active Substance: HYALURONATE SODIUM
     Dosage: UNK (AS INSTRUCTED) RIGHT EYE. PRESERVATIVE FREE
     Route: 065
     Dates: start: 20230221
  8. LATANOPROST [Concomitant]
     Active Substance: LATANOPROST
     Dosage: 10 MICROGRAM, QD(AT NIGHT. 50MICROGRAMS/ML. 0.2ML UNIT DOSE)(LEFT EYE)
     Route: 065
     Dates: start: 20230201
  9. OMEPRAZOLE [Concomitant]
     Active Substance: OMEPRAZOLE
     Dosage: 40 MILLIGRAM, QD(AT NIGHT)
     Route: 065
     Dates: start: 20230127
  10. ONDANSETRON [Concomitant]
     Active Substance: ONDANSETRON
     Dosage: 8 MILLIGRAM (UP TO EVERY 4 HOURS AS PER RENAL TEAM ADVICE)
     Route: 065
     Dates: start: 20221124
  11. AMDINOCILLIN PIVOXIL [Concomitant]
     Active Substance: AMDINOCILLIN PIVOXIL
     Dosage: 200 MILLIGRAM, TID (2 TABLETS INITIALLY (400MG) THEN 1.)
     Route: 065
     Dates: start: 20230224
  12. TRIMETHOPRIM [Concomitant]
     Active Substance: TRIMETHOPRIM
     Dosage: 200 MILLIGRAM, BID
     Route: 065
     Dates: start: 20230215

REACTIONS (2)
  - Tendon rupture [Unknown]
  - Off label use [Unknown]
